FAERS Safety Report 8889016 (Version 1)
Quarter: 2012Q4

REPORT INFORMATION
  Report Type: 
  Country: FR (occurrence: FR)
  Receive Date: 20121106
  Receipt Date: 20121106
  Transmission Date: 20130627
  Serious: Yes (Death)
  Sender: FDA-Public Use
  Company Number: FR-TEVA-367032ISR

PATIENT
  Sex: Male

DRUGS (2)
  1. CLOPIDOGREL [Suspect]
     Route: 048
  2. TAHOR [Concomitant]

REACTIONS (2)
  - Oesophageal perforation [Fatal]
  - Postoperative wound infection [Fatal]
